FAERS Safety Report 13943307 (Version 1)
Quarter: 2017Q3

REPORT INFORMATION
  Report Type: Spontaneous
  Country: PT (occurrence: PT)
  Receive Date: 20170907
  Receipt Date: 20170907
  Transmission Date: 20171128
  Serious: Yes (Disabling)
  Sender: FDA-Public Use
  Company Number: PT-TEVA-802667ISR

PATIENT
  Age: 31 Year
  Sex: Male

DRUGS (3)
  1. VICTAN [Concomitant]
     Active Substance: ETHYL LOFLAZEPATE
     Dosage: OCCASIONALLY
  2. VALERIANA [Concomitant]
     Active Substance: VALERIAN
  3. PANTOPRAZOL RATIOPHARM [Suspect]
     Active Substance: PANTOPRAZOLE SODIUM
     Dosage: 20 MILLIGRAM DAILY; GASTRO-RESISTANT TABLET
     Route: 048

REACTIONS (2)
  - Dizziness [Recovering/Resolving]
  - Tachycardia [Recovering/Resolving]
